FAERS Safety Report 5066822-1 (Version None)
Quarter: 2006Q3

REPORT INFORMATION
  Report Type: 
  Country: None (occurrence: None)
  Receive Date: 20060726
  Receipt Date: 20060710
  Transmission Date: 20061208
  Serious: Yes (Hospitalization)
  Sender: FDA-Public Use
  Company Number: 2006RR-02999

PATIENT
  Age: 83 Year
  Sex: Male

DRUGS (7)
  1. SIMVASTATIN [Suspect]
     Indication: BLOOD CHOLESTEROL
     Dosage: 40 MG, ORAL
     Route: 048
     Dates: start: 20060317, end: 20060530
  2. CLOPIDOGREL [Concomitant]
  3. DILTIAZEM FAMILY (DILTIAZEM) CAPSULE, DELAYED RELEASE [Concomitant]
  4. ELANTAN [Concomitant]
  5. FRUSEMIDE TABLET (FUROSEMIDE) TABLET [Concomitant]
  6. NICORANDIL [Concomitant]
  7. OMEPRAZOLE (OMEPRAZOLE) CAPSULE [Concomitant]

REACTIONS (1)
  - RHABDOMYOLYSIS [None]
